FAERS Safety Report 23626862 (Version 1)
Quarter: 2024Q1

REPORT INFORMATION
  Report Type: Spontaneous
  Country: US (occurrence: US)
  Receive Date: 20240313
  Receipt Date: 20240313
  Transmission Date: 20240410
  Serious: No
  Sender: FDA-Public Use
  Company Number: US-THE RITEDOSE CORPORATION-2024RIT000004

PATIENT

DRUGS (1)
  1. ARFORMOTEROL TARTRATE INHALATION [Suspect]
     Active Substance: ARFORMOTEROL TARTRATE
     Indication: Chronic obstructive pulmonary disease
     Dosage: 1 VIAL, BID
     Route: 055

REACTIONS (4)
  - Oral discomfort [Unknown]
  - Product odour abnormal [Unknown]
  - Product after taste [Unknown]
  - Product quality issue [Unknown]
